FAERS Safety Report 9109702 (Version 1)
Quarter: 2013Q1

REPORT INFORMATION
  Report Type: Spontaneous
  Country: GB (occurrence: GB)
  Receive Date: 20130222
  Receipt Date: 20130222
  Transmission Date: 20140127
  Serious: Yes (Hospitalization)
  Sender: FDA-Public Use
  Company Number: GB-UCBSA-078706

PATIENT
  Age: 52 Year
  Sex: Male

DRUGS (9)
  1. CERTOLIZUMAB PEGOL [Suspect]
     Indication: RHEUMATOID ARTHRITIS
     Dosage: BN FROM OCT 2012
     Route: 058
     Dates: start: 20111107, end: 20121203
  2. FOLIC ACID [Concomitant]
     Route: 048
  3. ARCOXIA [Concomitant]
     Route: 048
  4. LISINOPRIL [Concomitant]
     Route: 048
  5. AMLODIPINE [Concomitant]
     Route: 048
  6. BISOPROLOL [Concomitant]
     Route: 048
  7. WARFARIN [Concomitant]
     Dosage: DOSE-AS PER INR
     Route: 048
  8. METHOTREXATE [Concomitant]
  9. BUPRENORPHINE [Concomitant]
     Dosage: DOSE PER INTAKE-10 MCG
     Route: 062

REACTIONS (1)
  - Pulmonary tuberculosis [Not Recovered/Not Resolved]
